FAERS Safety Report 4300635-0 (Version None)
Quarter: 2004Q1

REPORT INFORMATION
  Report Type: 
  Country: None (occurrence: None)
  Receive Date: 20040220
  Receipt Date: 20040123
  Transmission Date: 20041129
  Serious: Yes (Other)
  Sender: FDA-Public Use
  Company Number: FR-BRISTOL-MYERS SQUIBB COMPANY-12486742

PATIENT
  Age: 60 Year
  Sex: Female

DRUGS (3)
  1. ELISOR TABS 20 MG [Suspect]
     Indication: LOW DENSITY LIPOPROTEIN
     Route: 048
     Dates: start: 19981126, end: 20040125
  2. TANAKAN [Concomitant]
     Dosage: DOSAGE FORM= TABS.
     Dates: start: 19960101
  3. VEINAMITOL [Concomitant]

REACTIONS (1)
  - NEUTROPENIA [None]
